FAERS Safety Report 4819489-9 (Version None)
Quarter: 2005Q4

REPORT INFORMATION
  Report Type: 
  Country: None (occurrence: None)
  Receive Date: 20051031
  Receipt Date: 20050713
  Transmission Date: 20060501
  Serious: No
  Sender: FDA-Public Use
  Company Number: 2005PV000330

PATIENT
  Age: 48 Year
  Sex: Female
  Weight: 86.1834 kg

DRUGS (9)
  1. SYMLIN [Suspect]
     Indication: DIABETES MELLITUS INSULIN-DEPENDENT
     Dosage: 15 UG; TID; SC
     Route: 058
     Dates: start: 20050713
  2. NOVOLOG [Concomitant]
  3. LANTUS [Concomitant]
  4. VESICARE [Concomitant]
  5. VALTREX [Concomitant]
  6. ALLEGRA [Concomitant]
  7. CHROMAGEN FORTE [Concomitant]
  8. CENTRUM [Concomitant]
  9. FLAX SEED OIL [Concomitant]

REACTIONS (3)
  - FEELING HOT [None]
  - MEDICATION ERROR [None]
  - NAUSEA [None]
